FAERS Safety Report 11124071 (Version 1)
Quarter: 2015Q2

REPORT INFORMATION
  Report Type: Spontaneous
  Country: FR (occurrence: FR)
  Receive Date: 20150520
  Receipt Date: 20150520
  Transmission Date: 20150821
  Serious: Yes (Hospitalization)
  Sender: FDA-Public Use
  Company Number: FR-JAZZ-2014-FR-001989

PATIENT

DRUGS (25)
  1. CERUBIDINE [Suspect]
     Active Substance: DAUNORUBICIN HYDROCHLORIDE
     Indication: ACUTE LYMPHOCYTIC LEUKAEMIA
     Dosage: 52 MG, QD
     Route: 042
     Dates: start: 20131231, end: 20140115
  2. ENDOXAN [Suspect]
     Active Substance: CYCLOPHOSPHAMIDE
     Dosage: 1300 MG, ON D1 AND D15
     Dates: start: 20131104
  3. LEXOMIL [Concomitant]
     Active Substance: BROMAZEPAM
     Dosage: QD, PRN
     Route: 048
  4. LIPANTHYL [Concomitant]
     Active Substance: FENOFIBRATE
     Dosage: 160 MG, QD
     Route: 048
  5. TRAMADOL [Concomitant]
     Active Substance: TRAMADOL
     Indication: PAIN
     Dosage: 150 MG, BID, PRN
     Route: 048
     Dates: end: 20140115
  6. PRIMPERAN [Concomitant]
     Active Substance: METOCLOPRAMIDE HYDROCHLORIDE
     Dosage: 10 MG, TID, PRN
     Route: 048
     Dates: end: 20140102
  7. CORTANCYL [Suspect]
     Active Substance: PREDNISONE
     Dosage: 100 MG, QD ON D1 AND 14
     Dates: start: 20130621
  8. VINCRISTINE TEVA [Suspect]
     Active Substance: VINCRISTINE
     Indication: ACUTE LYMPHOCYTIC LEUKAEMIA
     Dosage: 1 MG/ML, SINGLE
     Route: 042
     Dates: start: 20131231
  9. ENDOXAN [Suspect]
     Active Substance: CYCLOPHOSPHAMIDE
     Dosage: 1300 MG, ON D1 AND D15
     Dates: start: 20130909
  10. ERWINASE [Suspect]
     Active Substance: ASPARAGINASE ERWINIA CHRYSANTHEMI
     Dosage: 20500 IU, 8 INJECTIONS TOTAL
     Route: 041
     Dates: start: 20140108, end: 20140129
  11. ENDOXAN [Suspect]
     Active Substance: CYCLOPHOSPHAMIDE
     Indication: ACUTE LYMPHOCYTIC LEUKAEMIA
     Dosage: 1300 MG, ON D1 AND D15
     Dates: start: 20130712
  12. INEXIUM [Concomitant]
     Active Substance: ESOMEPRAZOLE
     Dosage: 20 MG, QD
     Route: 048
  13. WELLVONE [Concomitant]
     Active Substance: ATOVAQUONE
     Dosage: UNK UNK, BID
     Route: 048
     Dates: end: 20140108
  14. GRANOCYTE 34 [Concomitant]
     Active Substance: LENOGRASTIM
     Dosage: 1 UNKNOWN, QD
  15. CORTANCYL [Suspect]
     Active Substance: PREDNISONE
     Indication: PRODUCT USED FOR UNKNOWN INDICATION
     Dosage: 100 MG, QD
     Route: 042
     Dates: start: 20131231, end: 20140112
  16. LOVENOX [Concomitant]
     Active Substance: ENOXAPARIN SODIUM
     Dosage: 0.4 ML, QD
     Route: 058
  17. ACUPAN [Concomitant]
     Active Substance: NEFOPAM HYDROCHLORIDE
     Dosage: UNK UNK, QID PRN
     Dates: end: 20140127
  18. ZELITREX [Concomitant]
     Active Substance: VALACYCLOVIR HYDROCHLORIDE
     Dosage: 500 MG, QD
     Route: 048
  19. DUPHALAC [Concomitant]
     Active Substance: LACTULOSE
     Dosage: 1 SACHET, BID, PRN
     Route: 048
     Dates: start: 20140103
  20. VINCRISTINE TEVA [Suspect]
     Active Substance: VINCRISTINE
     Dosage: 2 MG/ML, X2 DOSES
     Route: 042
     Dates: start: 20140114, end: 20140121
  21. ENDOXAN [Suspect]
     Active Substance: CYCLOPHOSPHAMIDE
     Dosage: 1300 MG, QD
     Dates: start: 20131231, end: 20140114
  22. ZOPHREN [Concomitant]
     Active Substance: ONDANSETRON
     Dosage: 2 UNKNOWN, QD
     Dates: end: 20140127
  23. CERUBIDINE [Suspect]
     Active Substance: DAUNORUBICIN HYDROCHLORIDE
     Dosage: 52 MG, QD ON D 1, 2, 3, 15 AND 16
  24. FRAGMINE [Concomitant]
     Active Substance: DALTEPARIN SODIUM
     Dosage: 0.5 MG, QD
     Route: 058
  25. EFFEXOR [Concomitant]
     Active Substance: VENLAFAXINE HYDROCHLORIDE
     Dosage: 37.5 MG, QD

REACTIONS (1)
  - Posterior reversible encephalopathy syndrome [Not Recovered/Not Resolved]

NARRATIVE: CASE EVENT DATE: 20140125
